FAERS Safety Report 6458739-2 (Version None)
Quarter: 2009Q4

REPORT INFORMATION
  Report Type: 
  Country: None (occurrence: None)
  Receive Date: 20091120
  Receipt Date: 20091106
  Transmission Date: 20100525
  Serious: Yes (Life-Threatening, Other)
  Sender: FDA-Public Use
  Company Number: AUR-APL-2009-01206

PATIENT
  Age: 54 Year
  Sex: Female
  Weight: 65 kg

DRUGS (2)
  1. SIMVASTATIN [Suspect]
     Indication: HYPERLIPIDAEMIA
     Dosage: 10MG, ORAL
     Route: 048
     Dates: start: 20081101, end: 20091101
  2. CITALOPRAM HYDROBROMIDE [Concomitant]

REACTIONS (1)
  - SUICIDAL IDEATION [None]
